FAERS Safety Report 6425216-4 (Version None)
Quarter: 2009Q4

REPORT INFORMATION
  Report Type: 
  Country: None (occurrence: None)
  Receive Date: 20091030
  Receipt Date: 20091030
  Transmission Date: 20100525
  Serious: No
  Sender: FDA-Public Use
  Company Number: None

PATIENT
  Sex: Male
  Weight: 83.9154 kg

DRUGS (1)
  1. NIASPAN [Suspect]
     Indication: BLOOD TRIGLYCERIDES DECREASED
     Dosage: QTY 30 1 DAILY ORANGE 10 DRAM ONE TIME ONLY
     Dates: start: 20090929

REACTIONS (4)
  - CHILLS [None]
  - FEELING COLD [None]
  - FREQUENT BOWEL MOVEMENTS [None]
  - NOCTURIA [None]
